FAERS Safety Report 7730137-0 (Version None)
Quarter: 2011Q3

REPORT INFORMATION
  Report Type: 
  Country: None (occurrence: None)
  Receive Date: 20110906
  Receipt Date: 20110901
  Transmission Date: 20111222
  Serious: Yes (Life-Threatening)
  Sender: FDA-Public Use
  Company Number: GB-PFIZER INC-2011205152

PATIENT
  Age: 51 Year
  Sex: Male

DRUGS (4)
  1. AMITRIPTYLINE [Concomitant]
  2. ATENOLOL [Concomitant]
  3. MORPHINE SULFATE [Concomitant]
  4. SUNITINIB MALATE [Suspect]
     Indication: NEUROENDOCRINE CARCINOMA
     Dosage: 37.5 MG, 1X/DAY
     Route: 048
     Dates: start: 20110418, end: 20110712

REACTIONS (1)
  - AORTIC DISSECTION [None]
